FAERS Safety Report 21880131 (Version 1)
Quarter: 2023Q1

REPORT INFORMATION
  Report Type: Report from Study
  Country: US (occurrence: US)
  Receive Date: 20230118
  Receipt Date: 20230118
  Transmission Date: 20230418
  Serious: No
  Sender: FDA-Public Use
  Company Number: US-MIRM-000719

PATIENT
  Age: 0 Year
  Sex: Male

DRUGS (4)
  1. LIVMARLI [Suspect]
     Active Substance: MARALIXIBAT CHLORIDE
     Indication: Pruritus
     Route: 048
     Dates: start: 20220428
  2. URSODIOL [Concomitant]
     Active Substance: URSODIOL
  3. RIFAMPIN [Suspect]
     Active Substance: RIFAMPIN
  4. CHOLESTYRAMINE [Suspect]
     Active Substance: CHOLESTYRAMINE

REACTIONS (5)
  - Pruritus [Not Recovered/Not Resolved]
  - Blood bilirubin [Not Recovered/Not Resolved]
  - Jaundice [Unknown]
  - Growth failure [Not Recovered/Not Resolved]
  - Tympanic membrane perforation [Recovered/Resolved]

NARRATIVE: CASE EVENT DATE: 20220801
